FAERS Safety Report 6702739-1 (Version None)
Quarter: 2010Q2

REPORT INFORMATION
  Report Type: 
  Country: None (occurrence: None)
  Receive Date: 20100429
  Receipt Date: 20100421
  Transmission Date: 20101027
  Serious: Yes (Hospitalization)
  Sender: FDA-Public Use
  Company Number: RU-NOVOPROD-306634

PATIENT
  Age: 46 Year
  Sex: Male
  Weight: 83 kg

DRUGS (3)
  1. ACTRAPID HM [Suspect]
     Indication: TYPE 1 DIABETES MELLITUS
     Dosage: 8 IU, TID
     Route: 058
     Dates: start: 20100128, end: 20100204
  2. LANTUS [Suspect]
     Indication: TYPE 1 DIABETES MELLITUS
     Dosage: 12 IU, QD
     Route: 058
     Dates: start: 20100128, end: 20100204
  3. LANTUS [Suspect]
     Dosage: UNK
     Route: 058
     Dates: start: 20100311

REACTIONS (2)
  - DIABETES MELLITUS INADEQUATE CONTROL [None]
  - INFECTED SKIN ULCER [None]
